FAERS Safety Report 9409456 (Version 3)
Quarter: 2014Q1

REPORT INFORMATION
  Report Type: Spontaneous
  Country: BR (occurrence: BR)
  Receive Date: 20130719
  Receipt Date: 20140109
  Transmission Date: 20141002
  Serious: Yes (Other)
  Sender: FDA-Public Use
  Company Number: BR-ROCHE-1178130

PATIENT
  Sex: Male
  Weight: 93 kg

DRUGS (4)
  1. RIVOTRIL [Suspect]
     Indication: HYPERTENSION
     Route: 065
     Dates: start: 201301, end: 20130110
  2. ADALAT [Concomitant]
     Indication: HYPERTENSION
     Route: 065
  3. CHLORTHALIDONE [Concomitant]
     Route: 065
  4. CAPTOPRIL [Concomitant]

REACTIONS (7)
  - Blood triglycerides increased [Recovering/Resolving]
  - Tremor [Recovering/Resolving]
  - Blood uric acid increased [Recovered/Resolved]
  - Blood creatinine increased [Not Recovered/Not Resolved]
  - Blood pressure increased [Recovered/Resolved]
  - Somnolence [Recovered/Resolved]
  - Muscular weakness [Not Recovered/Not Resolved]
